FAERS Safety Report 9510499 (Version 1)
Quarter: 2013Q3

REPORT INFORMATION
  Report Type: Spontaneous
  Country: US (occurrence: US)
  Receive Date: 20130909
  Receipt Date: 20130909
  Transmission Date: 20140515
  Serious: No
  Sender: FDA-Public Use
  Company Number: US-BAXTER-2013BAX034909

PATIENT
  Sex: 0

DRUGS (2)
  1. POTASSIUM CHLORIDE IN 5% DEXTROSE AND SODIUM CHLORIDE INJECTION, [Suspect]
     Indication: FLUID REPLACEMENT
     Route: 042
  2. MAGNESIUM SULFATE [Suspect]
     Indication: FLUID REPLACEMENT
     Route: 042

REACTIONS (3)
  - Device infusion issue [Recovered/Resolved]
  - Urine output decreased [Unknown]
  - Specific gravity urine increased [Unknown]
